FAERS Safety Report 10221504 (Version 1)
Quarter: 2014Q2

REPORT INFORMATION
  Report Type: Spontaneous
  Country: BR (occurrence: BR)
  Receive Date: 20140606
  Receipt Date: 20140606
  Transmission Date: 20141212
  Serious: Yes (Hospitalization, Other)
  Sender: FDA-Public Use
  Company Number: BR-DSJP-DSU-2014-110649

PATIENT
  Sex: 0

DRUGS (5)
  1. OLMETEC ANLO 20/5 [Suspect]
     Indication: HYPERTENSION
     Dosage: 20/5 MG, QD
     Route: 048
     Dates: start: 201201
  2. PROLOPA [Concomitant]
     Indication: PARKINSON^S DISEASE
     Dosage: 200/50 MG, QD
     Route: 048
     Dates: start: 2010
  3. PAMELOR [Concomitant]
     Indication: DEPRESSION
     Dosage: 75 MG, QD
     Route: 048
     Dates: start: 2012
  4. PAMELOR [Concomitant]
     Indication: NERVOUS SYSTEM DISORDER
  5. RIVOTRIL [Concomitant]
     Indication: ANXIETY
     Dosage: ONE TABLET, QD
     Route: 048

REACTIONS (2)
  - Urinary tract infection [Unknown]
  - Deafness [Unknown]
